FAERS Safety Report 16145822 (Version 1)
Quarter: 2019Q2

REPORT INFORMATION
  Report Type: Spontaneous
  Country: US (occurrence: US)
  Receive Date: 20190401
  Receipt Date: 20190401
  Transmission Date: 20190711
  Serious: No
  Sender: FDA-Public Use
  Company Number: None

PATIENT
  Age: 41 Year
  Weight: 148 kg

DRUGS (2)
  1. AIMOVIG [Suspect]
     Active Substance: ERENUMAB-AOOE
     Indication: MIGRAINE
     Route: 058
     Dates: start: 20180601
  2. AIMOVIG [Suspect]
     Active Substance: ERENUMAB-AOOE
     Dates: start: 20180607

REACTIONS (3)
  - Soliloquy [None]
  - Hyperhidrosis [None]
  - Anxiety [None]

NARRATIVE: CASE EVENT DATE: 20190401
